FAERS Safety Report 7197503-6 (Version None)
Quarter: 2010Q4

REPORT INFORMATION
  Report Type: 
  Country: None (occurrence: None)
  Receive Date: 20101227
  Receipt Date: 20101222
  Transmission Date: 20110411
  Serious: Yes (Death)
  Sender: FDA-Public Use
  Company Number: SD-ASTELLAS-2010US005178

PATIENT

DRUGS (2)
  1. AMBISOME [Suspect]
     Indication: VISCERAL LEISHMANIASIS
     Dosage: 10 MG/KG, UID/QD
     Route: 042
     Dates: start: 20101127, end: 20101127
  2. SODIUM STIBOGLUCONATE [Suspect]
     Indication: VISCERAL LEISHMANIASIS
     Dosage: 20 MG/KG, UID/QD
     Route: 065
     Dates: start: 20101128, end: 20101207

REACTIONS (1)
  - ANAEMIA [None]
